FAERS Safety Report 10997612 (Version 1)
Quarter: 2015Q2

REPORT INFORMATION
  Report Type: Spontaneous
  Country: US (occurrence: None)
  Receive Date: 20150406
  Receipt Date: 20150406
  Transmission Date: 20150821
  Serious: Yes (Other)
  Sender: FDA-Public Use
  Company Number: US-TORRENT-00000920, 2013S1012398

PATIENT
  Age: 58 Year
  Sex: Female

DRUGS (2)
  1. CARBAMAZEPINE TABLETS, USP (CARBAMAZEPINE) (TPL) [Suspect]
     Active Substance: CARBAMAZEPINE
     Indication: PRODUCT USED FOR UNKNOWN INDICATION
  2. CLOZAPINE TABLETS (CLOZAPINE)(MYLAN PHARMACEUTICALS) [Suspect]
     Active Substance: CLOZAPINE
     Indication: PRODUCT USED FOR UNKNOWN INDICATION

REACTIONS (2)
  - Granulocytopenia [None]
  - Leukopenia [None]
